FAERS Safety Report 24274467 (Version 1)
Quarter: 2024Q3

REPORT INFORMATION
  Report Type: Spontaneous
  Country: CN (occurrence: None)
  Receive Date: 20240902
  Receipt Date: 20240902
  Transmission Date: 20241017
  Serious: Yes (Death, Other)
  Sender: ASTRAZENECA
  Company Number: 2024A198168

PATIENT
  Age: 80 Year
  Sex: Male

DRUGS (2)
  1. OSIMERTINIB [Suspect]
     Active Substance: OSIMERTINIB
     Indication: Lung cancer metastatic
     Route: 048
  2. CRIZOTINIB [Concomitant]
     Active Substance: CRIZOTINIB
     Indication: Neuroendocrine carcinoma

REACTIONS (5)
  - Acquired gene mutation [Fatal]
  - Malignant neoplasm progression [Fatal]
  - Drug resistance [Fatal]
  - Asthenia [Unknown]
  - Decreased appetite [Unknown]
